FAERS Safety Report 7693789-X (Version None)
Quarter: 2011Q3

REPORT INFORMATION
  Report Type: 
  Country: None (occurrence: None)
  Receive Date: 20110815
  Receipt Date: 20110805
  Transmission Date: 20111222
  Serious: Yes (Other)
  Sender: FDA-Public Use
  Company Number: 2011SP037404

PATIENT
  Sex: Male

DRUGS (1)
  1. INTERFERON [Suspect]
     Indication: HEPATITIS C

REACTIONS (3)
  - HEPATIC CIRRHOSIS [None]
  - DISEASE RECURRENCE [None]
  - HEPATITIS C [None]
